FAERS Safety Report 7641745-X (Version None)
Quarter: 2011Q3

REPORT INFORMATION
  Report Type: 
  Country: None (occurrence: None)
  Receive Date: 20110728
  Receipt Date: 20110715
  Transmission Date: 20111222
  Serious: Yes (Hospitalization, Other)
  Sender: FDA-Public Use
  Company Number: US-BAYER-201034636NA

PATIENT
  Age: 22 Year
  Sex: Female
  Weight: 96.145 kg

DRUGS (3)
  1. YAZ [Suspect]
     Indication: CONTRACEPTION
     Dosage: UNK
     Dates: start: 20070701, end: 20080801
  2. LEVAQUIN [Concomitant]
  3. LEXAPRO [Concomitant]

REACTIONS (5)
  - CHOLELITHIASIS [None]
  - ABDOMINAL PAIN [None]
  - GALLBLADDER DISORDER [None]
  - DYSPEPSIA [None]
  - ABDOMINAL DISCOMFORT [None]
